FAERS Safety Report 5454072-6 (Version None)
Quarter: 2007Q3

REPORT INFORMATION
  Report Type: 
  Country: None (occurrence: None)
  Receive Date: 20070917
  Receipt Date: 20070913
  Transmission Date: 20080115
  Serious: Yes (Life-Threatening)
  Sender: FDA-Public Use
  Company Number: JP-ASTRAZENECA-2007AP05338

PATIENT
  Age: 25033 Day
  Sex: Female
  Weight: 47 kg

DRUGS (6)
  1. IRESSA [Suspect]
     Indication: LUNG NEOPLASM
     Route: 048
     Dates: start: 20070724, end: 20070820
  2. IRESSA [Suspect]
     Indication: ADENOCARCINOMA
     Route: 048
     Dates: start: 20070724, end: 20070820
  3. MAGMITT [Concomitant]
     Route: 048
     Dates: start: 20070723, end: 20070820
  4. PICIBANIL [Concomitant]
     Dates: start: 20070510
  5. CISPLATIN [Concomitant]
     Dates: start: 20070613
  6. TAXOTERE [Concomitant]
     Dates: start: 20070613

REACTIONS (1)
  - DELIRIUM [None]
